FAERS Safety Report 4652706-7 (Version None)
Quarter: 2005Q2

REPORT INFORMATION
  Report Type: 
  Country: None (occurrence: None)
  Receive Date: 20050502
  Receipt Date: 20050419
  Transmission Date: 20051028
  Serious: Yes (Hospitalization)
  Sender: FDA-Public Use
  Company Number: HQWYE367616FEB05

PATIENT
  Age: 90 Year
  Sex: Female

DRUGS (7)
  1. CORDARONE [Suspect]
     Indication: VENTRICULAR EXTRASYSTOLES
     Dosage: 100 MG 5X PER 1 WK, ORAL
     Route: 048
     Dates: start: 20040101, end: 20050205
  2. ALLOPURINOL [Concomitant]
  3. KARDEGIC (ACETYLSALICYLATE LYSINE) [Concomitant]
  4. AMLOR (AMLODIPINE BESILATE) [Concomitant]
  5. DIGOXIN [Concomitant]
  6. FUROSEMIDE [Concomitant]
  7. TAREG (VALSARTAN) [Concomitant]

REACTIONS (4)
  - OPTIC ISCHAEMIC NEUROPATHY [None]
  - PAPILLOEDEMA [None]
  - VISUAL ACUITY REDUCED [None]
  - VISUAL FIELD DEFECT [None]
